FAERS Safety Report 4676652-8 (Version None)
Quarter: 2005Q2

REPORT INFORMATION
  Report Type: 
  Country: None (occurrence: None)
  Receive Date: 20050527
  Receipt Date: 20050520
  Transmission Date: 20051028
  Serious: Yes (Other)
  Sender: FDA-Public Use
  Company Number: PHEH2005US05803

PATIENT
  Sex: Female

DRUGS (11)
  1. ZOMETA [Suspect]
     Indication: BREAST CANCER
     Dosage: 4MG QMO
     Route: 042
     Dates: start: 20040101, end: 20050201
  2. LISINOPRIL TABLETS (NGX) [Concomitant]
  3. ATENOLOL TABLETS USP (NGX) [Concomitant]
  4. PREVACID [Concomitant]
  5. OXYCODONE HCL [Concomitant]
  6. PREDNISONE TABLETS USP (NGX) [Concomitant]
     Dosage: MULTIPLE COURSES
  7. AMBIEN [Concomitant]
  8. ALBUTEROL [Concomitant]
  9. FLOVENT [Concomitant]
  10. DIGOXIN [Concomitant]
  11. RITUXAN [Concomitant]
     Indication: LYMPHOMA
     Dosage: UNK Q6MO
     Dates: start: 20031101

REACTIONS (2)
  - ASEPTIC NECROSIS BONE [None]
  - TOOTH LOSS [None]
